FAERS Safety Report 6093626-3 (Version None)
Quarter: 2009Q1

REPORT INFORMATION
  Report Type: 
  Country: None (occurrence: None)
  Receive Date: 20090226
  Receipt Date: 20090216
  Transmission Date: 20090719
  Serious: Yes (Other)
  Sender: FDA-Public Use
  Company Number: PHEH2006US12371

PATIENT
  Sex: Female
  Weight: 69.841 kg

DRUGS (3)
  1. AREDIA [Suspect]
     Indication: RESORPTION BONE INCREASED
  2. CARBOPLATIN [Concomitant]
  3. TAXOL [Concomitant]

REACTIONS (9)
  - ANXIETY [None]
  - ARTHRALGIA [None]
  - FACIAL PAIN [None]
  - INJURY [None]
  - NECK PAIN [None]
  - OSTEOLYSIS [None]
  - OSTEONECROSIS [None]
  - PAIN [None]
  - PHYSICAL DISABILITY [None]
